FAERS Safety Report 14872159 (Version 3)
Quarter: 2020Q1

REPORT INFORMATION
  Report Type: Spontaneous
  Country: US (occurrence: US)
  Receive Date: 20180509
  Receipt Date: 20200127
  Transmission Date: 20200409
  Serious: Yes (Other)
  Sender: FDA-Public Use
  Company Number: US-TAKEDA-2018TUS016093

PATIENT

DRUGS (71)
  1. NEXIUM [Suspect]
     Active Substance: ESOMEPRAZOLE MAGNESIUM
     Dosage: 40 MILLIGRAM
     Route: 048
     Dates: start: 2007
  2. NEXIUM 24HR [Suspect]
     Active Substance: ESOMEPRAZOLE MAGNESIUM
     Indication: PRODUCT USED FOR UNKNOWN INDICATION
     Dosage: UNK
     Route: 048
     Dates: end: 2016
  3. ACIPHEX [Suspect]
     Active Substance: RABEPRAZOLE SODIUM
     Indication: GASTROOESOPHAGEAL REFLUX DISEASE
     Dosage: UNK
     Route: 048
     Dates: end: 2015
  4. LOTENSIN [Concomitant]
     Active Substance: BENAZEPRIL HYDROCHLORIDE
  5. ACETAMINOPHEN. [Concomitant]
     Active Substance: ACETAMINOPHEN
     Indication: PAIN
  6. MULTI-VITAMINS VITAFIT [Concomitant]
     Active Substance: VITAMINS
  7. ASPIRIN                            /00002701/ [Concomitant]
     Active Substance: ASPIRIN
     Dosage: UNK
     Dates: start: 20060619
  8. VIBRAMYCIN [Concomitant]
     Active Substance: DOXYCYCLINE
  9. PRILOSEC [Suspect]
     Active Substance: OMEPRAZOLE MAGNESIUM
     Indication: PRODUCT USED FOR UNKNOWN INDICATION
     Dosage: UNK
     Route: 048
     Dates: start: 1989, end: 2016
  10. VIMOVO [Suspect]
     Active Substance: ESOMEPRAZOLE MAGNESIUM\NAPROXEN
     Indication: PRODUCT USED FOR UNKNOWN INDICATION
     Dosage: UNK
     Route: 048
     Dates: end: 2015
  11. ESOMEPRAZOLE. [Suspect]
     Active Substance: ESOMEPRAZOLE MAGNESIUM
     Indication: PRODUCT USED FOR UNKNOWN INDICATION
     Dosage: UNK
     Route: 048
  12. VIOXX [Concomitant]
     Active Substance: ROFECOXIB
  13. CECLOR [Concomitant]
     Active Substance: CEFACLOR
  14. LEVAQUIN [Concomitant]
     Active Substance: LEVOFLOXACIN
     Dosage: UNK
     Dates: start: 20070824
  15. LASIX [Concomitant]
     Active Substance: FUROSEMIDE
  16. IBUPROFEN. [Concomitant]
     Active Substance: IBUPROFEN
     Indication: PAIN
  17. VITAMIN D                          /00107901/ [Concomitant]
     Active Substance: ERGOCALCIFEROL
  18. TUMS                               /00193601/ [Concomitant]
     Active Substance: CALCIUM CARBONATE\MAGNESIUM CARBONATE\MAGNESIUM TRISILICATE
  19. INDOCIN [Concomitant]
     Active Substance: INDOMETHACIN
  20. DIOVAN [Concomitant]
     Active Substance: VALSARTAN
  21. LIPITOR [Concomitant]
     Active Substance: ATORVASTATIN CALCIUM
  22. FERREX FORTE [Concomitant]
  23. GAVISCON                           /00237601/ [Concomitant]
     Active Substance: ALUMINUM HYDROXIDE\MAGNESIUM CARBONATE
  24. ATOR [Concomitant]
     Active Substance: ATORVASTATIN CALCIUM
  25. PROTONIX [Suspect]
     Active Substance: PANTOPRAZOLE SODIUM
     Indication: PRODUCT USED FOR UNKNOWN INDICATION
     Dosage: UNK
     Route: 048
     Dates: end: 2015
  26. INDOCID                            /00003801/ [Concomitant]
     Active Substance: INDOMETHACIN
  27. TORADOL [Concomitant]
     Active Substance: KETOROLAC TROMETHAMINE
  28. DURICEF [Concomitant]
     Active Substance: CEFADROXIL
  29. LEVAQUIN [Concomitant]
     Active Substance: LEVOFLOXACIN
     Dosage: UNK
     Dates: start: 20120218
  30. BACTRIM [Concomitant]
     Active Substance: SULFAMETHOXAZOLE\TRIMETHOPRIM
  31. BABY ASPIRIN [Concomitant]
     Active Substance: ASPIRIN
  32. ASPIRIN                            /00002701/ [Concomitant]
     Active Substance: ASPIRIN
     Dosage: UNK
     Dates: start: 20070827
  33. PEPCID                             /00305201/ [Concomitant]
     Active Substance: ALUMINUM HYDROXIDE\MAGNESIUM CARBONATE
     Dosage: UNK
     Dates: start: 2006
  34. ROLAIDS                            /00069401/ [Concomitant]
     Active Substance: DIHYDROXYALUMINUM SODIUM CARBONATE
  35. ERYTHROCIN                         /00020901/ [Concomitant]
     Active Substance: ERYTHROMYCIN ETHYLSUCCINATE
  36. DEXILANT [Suspect]
     Active Substance: DEXLANSOPRAZOLE
     Indication: PRODUCT USED FOR UNKNOWN INDICATION
     Dosage: UNK
     Route: 048
     Dates: end: 2015
  37. NEXIUM [Suspect]
     Active Substance: ESOMEPRAZOLE MAGNESIUM
     Indication: GASTROOESOPHAGEAL REFLUX DISEASE
     Dosage: UNK
     Route: 048
     Dates: start: 1989, end: 2016
  38. CIPRO [Concomitant]
     Active Substance: CIPROFLOXACIN HYDROCHLORIDE
  39. ERYC [Concomitant]
     Active Substance: ERYTHROMYCIN
  40. LEVAQUIN [Concomitant]
     Active Substance: LEVOFLOXACIN
     Dosage: UNK
     Dates: start: 20150105
  41. TETRACYCLIN [Concomitant]
  42. VANCOCIN [Concomitant]
     Active Substance: VANCOMYCIN HYDROCHLORIDE
  43. COZAAR [Concomitant]
     Active Substance: LOSARTAN POTASSIUM
  44. ASPIRIN                            /00002701/ [Concomitant]
     Active Substance: ASPIRIN
     Dosage: UNK
     Dates: start: 20160331
  45. RENITEC                            /00574902/ [Concomitant]
     Active Substance: ENALAPRIL MALEATE
  46. BENICAR [Concomitant]
     Active Substance: OLMESARTAN MEDOXOMIL
  47. PREVACID [Suspect]
     Active Substance: LANSOPRAZOLE
     Indication: GASTROOESOPHAGEAL REFLUX DISEASE
     Dosage: UNK
     Route: 048
     Dates: start: 1989, end: 2016
  48. LANSOPRAZOLE. [Suspect]
     Active Substance: LANSOPRAZOLE
     Indication: GASTROOESOPHAGEAL REFLUX DISEASE
     Dosage: UNK
     Route: 048
     Dates: start: 2006, end: 2015
  49. OMEPRAZOLE. [Suspect]
     Active Substance: OMEPRAZOLE
     Indication: GASTROOESOPHAGEAL REFLUX DISEASE
     Dosage: UNK
     Route: 048
     Dates: start: 1989, end: 2016
  50. ZITHROMAX [Concomitant]
     Active Substance: AZITHROMYCIN DIHYDRATE
     Dosage: UNK
     Dates: start: 20070705
  51. DORYX                              /00055701/ [Concomitant]
  52. PENICILLIN                         /00000901/ [Concomitant]
     Active Substance: PENICILLIN G
  53. OLMECIP [Concomitant]
  54. MOBIC [Concomitant]
     Active Substance: MELOXICAM
  55. KEFLEX [Concomitant]
     Active Substance: CEPHALEXIN
  56. STREPTOMYCIN [Concomitant]
     Active Substance: STREPTOMYCIN SULFATE
  57. PRINIVIL [Concomitant]
     Active Substance: LISINOPRIL
  58. ACCUPRIL [Concomitant]
     Active Substance: QUINAPRIL HYDROCHLORIDE
  59. PROGRAF [Concomitant]
     Active Substance: TACROLIMUS
  60. VASOTEC [Concomitant]
     Active Substance: ENALAPRIL MALEATE
  61. ZESTRIL [Concomitant]
     Active Substance: LISINOPRIL
  62. PREVACID 24 HR [Suspect]
     Active Substance: LANSOPRAZOLE
     Indication: GASTROOESOPHAGEAL REFLUX DISEASE
     Dosage: UNK
     Route: 048
     Dates: start: 1989, end: 2016
  63. OMEPRAZOLE. [Suspect]
     Active Substance: OMEPRAZOLE
     Dosage: 20 MILLIGRAM, UNK
     Route: 048
  64. NUMORPHAN [Concomitant]
     Active Substance: OXYMORPHONE HYDROCHLORIDE
  65. CEFTIN [Concomitant]
     Active Substance: CEFUROXIME AXETIL
  66. TOBREX [Concomitant]
     Active Substance: TOBRAMYCIN
  67. HYDROCHLOROTHIAZIDE. [Concomitant]
     Active Substance: HYDROCHLOROTHIAZIDE
  68. ASPIRIN                            /00002701/ [Concomitant]
     Active Substance: ASPIRIN
     Dosage: UNK
     Dates: start: 20061003
  69. RANITIDINE. [Concomitant]
     Active Substance: RANITIDINE
     Dosage: UNK
     Dates: start: 2015
  70. ZANTAC [Concomitant]
     Active Substance: RANITIDINE HYDROCHLORIDE
  71. ENAP                               /00574902/ [Concomitant]
     Active Substance: ENALAPRIL MALEATE

REACTIONS (8)
  - Chronic kidney disease [Not Recovered/Not Resolved]
  - Proteinuria [Not Recovered/Not Resolved]
  - Renal failure [Not Recovered/Not Resolved]
  - Tubulointerstitial nephritis [Not Recovered/Not Resolved]
  - Inflammation [Not Recovered/Not Resolved]
  - Infection [Not Recovered/Not Resolved]
  - Renal atrophy [Not Recovered/Not Resolved]
  - End stage renal disease [Not Recovered/Not Resolved]

NARRATIVE: CASE EVENT DATE: 2004
